FAERS Safety Report 5550581-X (Version None)
Quarter: 2007Q4

REPORT INFORMATION
  Report Type: 
  Country: None (occurrence: None)
  Receive Date: 20071212
  Receipt Date: 20071127
  Transmission Date: 20080405
  Serious: No
  Sender: FDA-Public Use
  Company Number: JP-ELI_LILLY_AND_COMPANY-JP200710003764

PATIENT
  Sex: Female
  Weight: 38.2 kg

DRUGS (2)
  1. GEMCITABINE HCL [Suspect]
     Indication: BILE DUCT CANCER STAGE IV
     Dosage: 1130 MG, OTHER
     Route: 042
     Dates: start: 20070705, end: 20070809
  2. GEMCITABINE HCL [Suspect]
     Dosage: 1130 MG, UNK
     Dates: start: 20070830

REACTIONS (6)
  - ASCITES [None]
  - DISEASE PROGRESSION [None]
  - HEPATIC FUNCTION ABNORMAL [None]
  - HYPOALBUMINAEMIA [None]
  - OEDEMA PERIPHERAL [None]
  - PLEURAL EFFUSION [None]
